FAERS Safety Report 13110116 (Version 1)
Quarter: 2017Q1

REPORT INFORMATION
  Report Type: Spontaneous
  Country: US (occurrence: US)
  Receive Date: 20170112
  Receipt Date: 20170112
  Transmission Date: 20170428
  Serious: Yes (Other)
  Sender: FDA-Public Use
  Company Number: US-ROCHE-1209886

PATIENT
  Age: 86 Year
  Sex: Female

DRUGS (8)
  1. ACTILYSE [Suspect]
     Active Substance: ALTEPLASE
     Indication: EMBOLIC STROKE
     Dosage: DOSE: 5.7 MG BOLUS OVER 1 MIN
     Route: 040
  2. FUROSEMIDE. [Concomitant]
     Active Substance: FUROSEMIDE
  3. MOEXIPRIL [Concomitant]
     Active Substance: MOEXIPRIL HYDROCHLORIDE
  4. ACTILYSE [Suspect]
     Active Substance: ALTEPLASE
     Dosage: 51.5 MG INFUSION OVER 60 MINS
     Route: 042
  5. PHENYTOIN. [Concomitant]
     Active Substance: PHENYTOIN
     Indication: SEIZURE
     Route: 042
  6. NITROGLYCERINE [Concomitant]
     Active Substance: NITROGLYCERIN
  7. DIGOXIN. [Concomitant]
     Active Substance: DIGOXIN
  8. LORAZEPAM. [Concomitant]
     Active Substance: LORAZEPAM
     Indication: SEIZURE
     Route: 042

REACTIONS (1)
  - Haemorrhagic transformation stroke [Unknown]
